FAERS Safety Report 9174201 (Version 1)
Quarter: 2013Q1

REPORT INFORMATION
  Report Type: Spontaneous
  Country: US (occurrence: None)
  Receive Date: 20130315
  Receipt Date: 20130315
  Transmission Date: 20140127
  Serious: Yes (Hospitalization)
  Sender: FDA-Public Use
  Company Number: ACET20130004

PATIENT
  Age: 19 Year
  Sex: Female

DRUGS (1)
  1. Q-PAP EXTRA STRENGTH TABLETS 500MG (PARACETAMOL) (500 MILLIGRAM, TABLETS) [Suspect]
     Indication: SUICIDE ATTEMPT
     Route: 048

REACTIONS (6)
  - Metabolic acidosis [None]
  - Lethargy [None]
  - Blood pressure increased [None]
  - Heart rate increased [None]
  - Aspartate aminotransferase increased [None]
  - Alanine aminotransferase increased [None]
